FAERS Safety Report 13565130 (Version 2)
Quarter: 2017Q2

REPORT INFORMATION
  Report Type: Report from Study
  Country: US (occurrence: US)
  Receive Date: 20170519
  Receipt Date: 20170522
  Transmission Date: 20170830
  Serious: Yes (Other)
  Sender: FDA-Public Use
  Company Number: US-ROCHE-1935721

PATIENT
  Sex: Male

DRUGS (1)
  1. OCREVUS [Suspect]
     Active Substance: OCRELIZUMAB
     Indication: MULTIPLE SCLEROSIS
     Dosage: ON DAY 1 AND ON DAY 15?ONGOING: UNKNOWN
     Route: 065
     Dates: start: 20170508

REACTIONS (3)
  - Hydronephrosis [Unknown]
  - Abdominal pain [Unknown]
  - Urinary tract infection [Unknown]
